FAERS Safety Report 6149829-2 (Version None)
Quarter: 2009Q2

REPORT INFORMATION
  Report Type: 
  Country: None (occurrence: None)
  Receive Date: 20090409
  Receipt Date: 20090409
  Transmission Date: 20091009
  Serious: Yes (Death, Hospitalization)
  Sender: FDA-Public Use
  Company Number: PHHO2004FR04461

PATIENT
  Sex: Female
  Weight: 61.8 kg

DRUGS (10)
  1. CGS 20267 T30748+ [Suspect]
     Indication: BREAST CANCER
     Dosage: 2.5 MG, QD
     Route: 048
     Dates: start: 20010626
  2. JUSTOR [Concomitant]
     Indication: HYPERTENSION
  3. ALDACTONE [Concomitant]
     Indication: CARDIAC FAILURE
  4. CORDARONE [Concomitant]
     Indication: CARDIAC FAILURE
  5. ZYLORIC [Concomitant]
     Indication: CARDIAC FAILURE
  6. NITRODERM [Concomitant]
     Indication: CARDIAC FAILURE
  7. HEMIGOXINE NATIVELLE [Concomitant]
     Indication: DIABETES MELLITUS
  8. LIPANOR [Concomitant]
  9. GLUCOPHAGE [Concomitant]
  10. HEMI-DAONIL [Concomitant]

REACTIONS (2)
  - CARDIAC FAILURE [None]
  - MYOCARDIAL INFARCTION [None]
